FAERS Safety Report 9637395 (Version 3)
Quarter: 2013Q4

REPORT INFORMATION
  Report Type: Report from Study
  Country: CA (occurrence: CA)
  Receive Date: 20131022
  Receipt Date: 20131121
  Transmission Date: 20140711
  Serious: Yes (Hospitalization, Other)
  Sender: FDA-Public Use
  Company Number: PHHY2011CA37422

PATIENT
  Age: 75 Year
  Sex: Female

DRUGS (4)
  1. SANDOSTATIN LAR [Suspect]
     Indication: METASTATIC CARCINOID TUMOUR
     Dosage: 20 MG, ONCE A MONTH
     Route: 030
     Dates: start: 20110401
  2. SANDOSTATIN LAR [Suspect]
     Dosage: 30 MG, ONCE A MONTH
     Route: 030
  3. CYCLOBENZAPRINE [Concomitant]
     Route: 065
  4. SYNTHROID [Concomitant]
     Dosage: 0.025 MG, EVERY DAY
     Route: 065

REACTIONS (11)
  - Small intestinal obstruction [Recovered/Resolved]
  - Constipation [Unknown]
  - Neck pain [Unknown]
  - Back pain [Unknown]
  - Haemorrhoids [Unknown]
  - Paraesthesia [Unknown]
  - Arthralgia [Unknown]
  - Blood magnesium decreased [Unknown]
  - Glucose tolerance impaired [Unknown]
  - Vitamin B12 decreased [Unknown]
  - Fatigue [Unknown]
